FAERS Safety Report 4780475-9 (Version None)
Quarter: 2005Q3

REPORT INFORMATION
  Report Type: 
  Country: None (occurrence: None)
  Receive Date: 20050926
  Receipt Date: 20050912
  Transmission Date: 20060218
  Serious: Yes (Life-Threatening, Hospitalization)
  Sender: FDA-Public Use
  Company Number: 217695

PATIENT
  Age: 9 Year
  Sex: Male

DRUGS (2)
  1. NUTROPIN AQ [Suspect]
     Indication: RADIOTHERAPY
     Dosage: 0.75 MG QD
     Dates: start: 20021219
  2. RITALIN [Concomitant]

REACTIONS (6)
  - BALANCE DISORDER [None]
  - CONFUSIONAL STATE [None]
  - ELECTROENCEPHALOGRAM ABNORMAL [None]
  - NEUROLOGICAL SYMPTOM [None]
  - PARALYSIS [None]
  - VERTIGO [None]
